FAERS Safety Report 19295021 (Version 1)
Quarter: 2021Q2

REPORT INFORMATION
  Report Type: Other
  Country: GB (occurrence: FR)
  Receive Date: 20210524
  Receipt Date: 20210524
  Transmission Date: 20210717
  Serious: Yes (Hospitalization, Other)
  Sender: FDA-Public Use
  Company Number: FR-SIEMENS HEALTHCARE LIMITED-PET-001106-2018

PATIENT
  Age: 69 Year
  Sex: Female
  Weight: 45 kg

DRUGS (2)
  1. METATRACE FDG (FLUORODEOXYGLUCOSE 18F) (FLURODEOXYGLUCOSE 18F),32?F?061212?2 [Suspect]
     Active Substance: FLUDEOXYGLUCOSE F-18
     Indication: SCAN
     Dosage: 150 MBQ, UNK
     Route: 041
     Dates: start: 20180628, end: 20180628
  2. SALINE [Concomitant]
     Active Substance: SODIUM CHLORIDE
     Indication: PRODUCT USED FOR UNKNOWN INDICATION
     Dosage: UNK
     Route: 042
     Dates: start: 20180628, end: 20180628

REACTIONS (6)
  - Anaphylactic shock [Recovered/Resolved]
  - Malaise [Recovered/Resolved]
  - Hypotension [Recovered/Resolved]
  - Pruritus [Recovered/Resolved]
  - Swollen tongue [Recovered/Resolved]
  - Mouth swelling [Recovered/Resolved]

NARRATIVE: CASE EVENT DATE: 20180628
